FAERS Safety Report 6593058-5 (Version None)
Quarter: 2010Q1

REPORT INFORMATION
  Report Type: 
  Country: None (occurrence: None)
  Receive Date: 20100222
  Receipt Date: 20100215
  Transmission Date: 20100710
  Serious: Yes (Disabling)
  Sender: FDA-Public Use
  Company Number: IT-MILLENNIUM PHARMACEUTICALS, INC.-2010-01067

PATIENT

DRUGS (1)
  1. VELCADE [Suspect]
     Indication: MULTIPLE MYELOMA
     Dosage: 1.1 MG, UNK
     Route: 042
     Dates: start: 20090717, end: 20091013

REACTIONS (4)
  - NAUSEA [None]
  - NEUROTOXICITY [None]
  - VOMITING [None]
  - WEIGHT DECREASED [None]
